FAERS Safety Report 18068677 (Version 3)
Quarter: 2024Q2

REPORT INFORMATION
  Report Type: Spontaneous
  Country: US (occurrence: US)
  Receive Date: 20200724
  Receipt Date: 20240412
  Transmission Date: 20240716
  Serious: Yes (Other)
  Sender: FDA-Public Use
  Company Number: US-GILEAD-2020-0485482

PATIENT
  Age: 33 Year
  Sex: Female
  Weight: 136.96 kg

DRUGS (30)
  1. VIREAD [Suspect]
     Active Substance: TENOFOVIR DISOPROXIL FUMARATE
     Indication: HIV infection
     Dosage: UNK
     Route: 065
     Dates: start: 2004, end: 2019
  2. TRUVADA [Suspect]
     Active Substance: EMTRICITABINE\TENOFOVIR DISOPROXIL FUMARATE
     Indication: HIV infection
     Dosage: UNK
     Route: 065
     Dates: start: 200411, end: 2015
  3. INSULIN NOS [Concomitant]
     Active Substance: INSULIN NOS
  4. COMBIVIR [Concomitant]
     Active Substance: LAMIVUDINE\ZIDOVUDINE
  5. CRIXIVAN [Concomitant]
     Active Substance: INDINAVIR SULFATE
  6. EDURANT [Concomitant]
     Active Substance: RILPIVIRINE HYDROCHLORIDE
  7. EPIVIR [Concomitant]
     Active Substance: LAMIVUDINE
  8. KALETRA [Concomitant]
     Active Substance: LOPINAVIR\RITONAVIR
  9. NORVIR [Concomitant]
     Active Substance: RITONAVIR
  10. RETROVIR [Concomitant]
     Active Substance: ZIDOVUDINE
  11. TIVICAY [Concomitant]
     Active Substance: DOLUTEGRAVIR SODIUM
  12. EVOTAZ [Concomitant]
     Active Substance: ATAZANAVIR SULFATE\COBICISTAT
  13. JULUCA [Concomitant]
     Active Substance: DOLUTEGRAVIR SODIUM\RILPIVIRINE HYDROCHLORIDE
  14. ALBUTEROL [Concomitant]
     Active Substance: ALBUTEROL
  15. NOVOLIN N [Concomitant]
     Active Substance: INSULIN HUMAN
  16. NOVOLOG [Concomitant]
     Active Substance: INSULIN ASPART
  17. DOXYCYCLINE [Concomitant]
     Active Substance: DOXYCYCLINE
  18. LISINOPRIL [Concomitant]
     Active Substance: LISINOPRIL
  19. EMTRIVA [Concomitant]
     Active Substance: EMTRICITABINE
  20. IPRATROPIUM [Concomitant]
     Active Substance: IPRATROPIUM
  21. PREDNISONE [Concomitant]
     Active Substance: PREDNISONE
  22. FLUCONAZOLE [Concomitant]
     Active Substance: FLUCONAZOLE
  23. TRAZODONE [Concomitant]
     Active Substance: TRAZODONE HYDROCHLORIDE
  24. SULFAMETHOXAZOLE\TRIMETHOPRIM [Concomitant]
     Active Substance: SULFAMETHOXAZOLE\TRIMETHOPRIM
  25. AZITHROMYCIN [Concomitant]
     Active Substance: AZITHROMYCIN
  26. ACYCLOVIR [Concomitant]
     Active Substance: ACYCLOVIR
  27. VITAMINS NOS [Concomitant]
     Active Substance: VITAMINS
  28. METRONIDAZOLE [Concomitant]
     Active Substance: METRONIDAZOLE
  29. ZIDOVUDINE [Concomitant]
     Active Substance: ZIDOVUDINE
  30. INDINAVIR [Concomitant]
     Active Substance: INDINAVIR

REACTIONS (7)
  - End stage renal disease [Not Recovered/Not Resolved]
  - Hypertensive nephropathy [Unknown]
  - Chronic kidney disease [Not Recovered/Not Resolved]
  - Osteomalacia [Not Recovered/Not Resolved]
  - Renal failure [Not Recovered/Not Resolved]
  - Pain [Not Recovered/Not Resolved]
  - Emotional distress [Not Recovered/Not Resolved]

NARRATIVE: CASE EVENT DATE: 20070608
